FAERS Safety Report 8935742 (Version 2)
Quarter: 2013Q2

REPORT INFORMATION
  Report Type: Spontaneous
  Country: US (occurrence: US)
  Receive Date: 20121130
  Receipt Date: 20130402
  Transmission Date: 20140414
  Serious: Yes (Hospitalization, Other)
  Sender: FDA-Public Use
  Company Number: US-BAYER-2012-125490

PATIENT
  Age: 29 Year
  Sex: Female
  Weight: 45.35 kg

DRUGS (11)
  1. YASMIN [Suspect]
     Indication: CONTRACEPTION
     Dosage: UNK
     Dates: start: 2002, end: 2011
  2. YASMIN [Suspect]
     Indication: PREMENSTRUAL SYNDROME
  3. YASMIN [Suspect]
     Indication: ABDOMINAL PAIN LOWER
  4. YAZ [Suspect]
  5. OCELLA [Suspect]
     Indication: CONTRACEPTION
     Dosage: UNK
     Dates: start: 2002, end: 2011
  6. OCELLA [Suspect]
     Indication: PREMENSTRUAL SYNDROME
  7. OCELLA [Suspect]
     Indication: ABDOMINAL PAIN LOWER
  8. KAPIDEX [Concomitant]
     Dosage: 60 MG, UNK
     Route: 048
     Dates: start: 20090810
  9. OMEPRAZOLE [Concomitant]
     Dosage: 20 MG, UNK
     Route: 048
     Dates: start: 20090911
  10. CLARITHROMYCIN [Concomitant]
     Dosage: 500 MG, UNK
     Route: 048
     Dates: start: 20090911
  11. LORTAB [Concomitant]
     Route: 048

REACTIONS (14)
  - Cholecystectomy [None]
  - Cholecystitis chronic [None]
  - Injury [None]
  - Pain [None]
  - Flatulence [None]
  - Dyspepsia [None]
  - Constipation [None]
  - Diarrhoea [None]
  - Scar [None]
  - Emotional distress [None]
  - Pain [None]
  - Anxiety [None]
  - Depression [None]
  - Abdominal distension [None]
